FAERS Safety Report 5024929-9 (Version None)
Quarter: 2006Q2

REPORT INFORMATION
  Report Type: 
  Country: None (occurrence: None)
  Receive Date: 20060613
  Receipt Date: 20060605
  Transmission Date: 20061013
  Serious: Yes (Hospitalization)
  Sender: FDA-Public Use
  Company Number: IE-JNJFOC-20060601641

PATIENT
  Age: 18 Year
  Sex: Male

DRUGS (2)
  1. IBUPROFEN [Suspect]
     Route: 048
  2. IBUPROFEN [Suspect]
     Indication: BACK PAIN
     Route: 048

REACTIONS (3)
  - INTENTIONAL DRUG MISUSE [None]
  - INTENTIONAL SELF-INJURY [None]
  - PANCREATITIS ACUTE [None]
